FAERS Safety Report 10100317 (Version 2)
Quarter: 2014Q2

REPORT INFORMATION
  Report Type: Spontaneous
  Country: US (occurrence: US)
  Receive Date: 20140423
  Receipt Date: 20140423
  Transmission Date: 20141212
  Serious: No
  Sender: FDA-Public Use
  Company Number: US-GILEAD-2013-0076572

PATIENT
  Age: 52 Year
  Sex: Female

DRUGS (3)
  1. LETAIRIS [Suspect]
     Indication: PULMONARY HYPERTENSION
     Dosage: 5 MG, QD
     Route: 048
     Dates: start: 20130511
  2. LETAIRIS [Suspect]
     Indication: HYPOXIA
  3. SILDENAFIL [Concomitant]
     Indication: PULMONARY HYPERTENSION
     Dosage: 20 MG, TID

REACTIONS (4)
  - Heart rate increased [Unknown]
  - Tremor [Unknown]
  - Palpitations [Not Recovered/Not Resolved]
  - Dizziness [Unknown]
